FAERS Safety Report 6194100-6 (Version None)
Quarter: 2009Q2

REPORT INFORMATION
  Report Type: 
  Country: None (occurrence: None)
  Receive Date: 20090518
  Receipt Date: 20090508
  Transmission Date: 20091009
  Serious: Yes (Other)
  Sender: FDA-Public Use
  Company Number: PHEH2009US04597

PATIENT
  Sex: Female

DRUGS (1)
  1. GENTEAL GEL (NVO) [Suspect]

REACTIONS (4)
  - CATARACT OPERATION [None]
  - DRY EYE [None]
  - EYE IRRITATION [None]
  - GLAUCOMA [None]
